FAERS Safety Report 6854373-0 (Version None)
Quarter: 2010Q3

REPORT INFORMATION
  Report Type: 
  Country: None (occurrence: None)
  Receive Date: 20100717
  Receipt Date: 20071210
  Transmission Date: 20110219
  Serious: No
  Sender: FDA-Public Use
  Company Number: US-PFIZER INC-2008002012

PATIENT
  Age: 70 Year
  Sex: Female

DRUGS (6)
  1. CHANTIX [Suspect]
  2. SPIRIVA [Suspect]
  3. ADVAIR DISKUS 100/50 [Concomitant]
  4. OMEPRAZOLE [Concomitant]
  5. FOSAMAX [Concomitant]
  6. LIPITOR [Concomitant]

REACTIONS (1)
  - FEELING JITTERY [None]
